FAERS Safety Report 22323900 (Version 1)
Quarter: 2023Q2

REPORT INFORMATION
  Report Type: Spontaneous
  Country: HU (occurrence: HU)
  Receive Date: 20230516
  Receipt Date: 20230516
  Transmission Date: 20230722
  Serious: Yes (Other)
  Sender: FDA-Public Use
  Company Number: HU-002147023-NVSC2023HU088459

PATIENT
  Sex: Female

DRUGS (6)
  1. MAYZENT [Suspect]
     Active Substance: SIPONIMOD
     Indication: Multiple sclerosis
     Dosage: 1 DOSAGE FORM (0.25 MG)
     Route: 048
     Dates: start: 20220908, end: 20220909
  2. MAYZENT [Suspect]
     Active Substance: SIPONIMOD
     Dosage: 2 DOSAGE FORM (0.25MG)
     Route: 048
     Dates: start: 20220910, end: 20220910
  3. MAYZENT [Suspect]
     Active Substance: SIPONIMOD
     Dosage: 3 DOSAGE FORM (0.25MG)
     Route: 048
     Dates: start: 20220911, end: 20220911
  4. MAYZENT [Suspect]
     Active Substance: SIPONIMOD
     Dosage: 5 DOSAGE FORM (0.25MG)
     Route: 048
     Dates: start: 20220912, end: 20220912
  5. MAYZENT [Suspect]
     Active Substance: SIPONIMOD
     Dosage: 1 DOSAGE FORM, QD (2MG)
     Route: 065
     Dates: start: 20220913
  6. MAYZENT [Suspect]
     Active Substance: SIPONIMOD
     Dosage: UNK (IN 2023)
     Route: 065

REACTIONS (3)
  - Gastrointestinal disorder [Recovered/Resolved]
  - Weight decreased [Unknown]
  - Headache [Recovered/Resolved]

NARRATIVE: CASE EVENT DATE: 20230101
